FAERS Safety Report 5772819-6 (Version None)
Quarter: 2008Q2

REPORT INFORMATION
  Report Type: 
  Country: None (occurrence: None)
  Receive Date: 20080611
  Receipt Date: 20080528
  Transmission Date: 20081010
  Serious: Yes (Hospitalization)
  Sender: FDA-Public Use
  Company Number: 235014J08USA

PATIENT
  Age: 47 Year
  Sex: Female
  Weight: 133.8111 kg

DRUGS (15)
  1. REBIF [Suspect]
     Indication: MULTIPLE SCLEROSIS
     Dosage: 44 MCG, 3 IN 1 WEEKS, SUBCUTANEOUS
     Route: 058
     Dates: start: 20080423
  2. CYMBALTA [Concomitant]
  3. PROTONIX [Concomitant]
  4. LYRICA [Concomitant]
  5. SIMVASTATIN [Concomitant]
  6. ENABLEX (DARIFENACIN) [Concomitant]
  7. DIOVAN [Concomitant]
  8. INSULIN [Concomitant]
  9. METFORMIN HCL [Concomitant]
  10. ASPIRIN [Concomitant]
  11. VICODIN [Concomitant]
  12. DARVOCET [Concomitant]
  13. CYCLOBENZAPRINE [Concomitant]
  14. IMITREX [Concomitant]
  15. KLONOPIN (CLONAZEPAM)` [Concomitant]

REACTIONS (1)
  - OESOPHAGEAL SPASM [None]
